FAERS Safety Report 4319907-9 (Version None)
Quarter: 2004Q1

REPORT INFORMATION
  Report Type: 
  Country: None (occurrence: None)
  Receive Date: 20040316
  Receipt Date: 20040310
  Transmission Date: 20041129
  Serious: Yes (Other)
  Sender: FDA-Public Use
  Company Number: 2003161760US

PATIENT
  Age: 39 Year
  Sex: Female
  Weight: 65.8 kg

DRUGS (1)
  1. CELEBREX [Suspect]
     Indication: CARPAL TUNNEL SYNDROME
     Dosage: 200/400 MG, QD, ORAL
     Route: 048
     Dates: start: 20030215, end: 20030411

REACTIONS (29)
  - ALOPECIA [None]
  - ASTHENIA [None]
  - BUTTOCK PAIN [None]
  - CARDIAC DISORDER [None]
  - CARDIAC MURMUR [None]
  - CHILLS [None]
  - DRUG HYPERSENSITIVITY [None]
  - DYSPNOEA [None]
  - ERYTHEMA [None]
  - FATIGUE [None]
  - FLATULENCE [None]
  - FURUNCLE [None]
  - HAEMORRHAGE [None]
  - HEART RATE INCREASED [None]
  - HEAT RASH [None]
  - LIVER DISORDER [None]
  - LUPUS-LIKE SYNDROME [None]
  - LYMPHADENOPATHY [None]
  - MUSCULAR WEAKNESS [None]
  - PRURITUS [None]
  - RASH [None]
  - RASH PAPULAR [None]
  - RENAL DISORDER [None]
  - SKIN BURNING SENSATION [None]
  - SKIN LACERATION [None]
  - STOMATITIS [None]
  - SWELLING [None]
  - URTICARIA [None]
  - WEIGHT INCREASED [None]
